FAERS Safety Report 7138132-X (Version None)
Quarter: 2010Q4

REPORT INFORMATION
  Report Type: 
  Country: None (occurrence: None)
  Receive Date: 20101206
  Receipt Date: 20101125
  Transmission Date: 20110411
  Serious: Yes (Other)
  Sender: FDA-Public Use
  Company Number: CA-JNJFOC-20101200344

PATIENT
  Sex: Female
  Weight: 58.5 kg

DRUGS (2)
  1. REMICADE [Suspect]
     Indication: COLITIS ULCERATIVE
     Dosage: 5MG/KG, INFUSION #3
     Route: 042
  2. REMICADE [Suspect]
     Dosage: 5MG/KG
     Route: 042

REACTIONS (7)
  - CHEST DISCOMFORT [None]
  - COUGH [None]
  - ERYTHEMA [None]
  - HYPOAESTHESIA ORAL [None]
  - INFUSION RELATED REACTION [None]
  - RESPIRATORY RATE DECREASED [None]
  - SPEECH DISORDER [None]
